FAERS Safety Report 14851221 (Version 3)
Quarter: 2018Q3

REPORT INFORMATION
  Report Type: Spontaneous
  Country: IL (occurrence: IL)
  Receive Date: 20180507
  Receipt Date: 20180806
  Transmission Date: 20181010
  Serious: Yes (Hospitalization, Other)
  Sender: FDA-Public Use
  Company Number: IL-BRISTOL-MYERS SQUIBB COMPANY-BMS-2018-040091

PATIENT
  Age: 52 Year
  Sex: Female

DRUGS (3)
  1. NIVOLUMAB [Suspect]
     Active Substance: NIVOLUMAB
     Indication: PRODUCT USED FOR UNKNOWN INDICATION
     Dosage: 3 MG/KG, Q2WK
     Route: 065
  2. IPILIMUMAB [Suspect]
     Active Substance: IPILIMUMAB
     Indication: RENAL CELL CARCINOMA
     Dosage: 1 MG/KG, Q3WK
     Route: 065
     Dates: start: 20171231, end: 20180304
  3. NIVOLUMAB [Suspect]
     Active Substance: NIVOLUMAB
     Indication: RENAL CELL CARCINOMA
     Dosage: 3 MG/KG, Q3WK
     Route: 065
     Dates: start: 20171231, end: 20180304

REACTIONS (13)
  - Seizure [Unknown]
  - Pain in extremity [Unknown]
  - Hallucination [Unknown]
  - Malignant neoplasm progression [Unknown]
  - Hospitalisation [Unknown]
  - Product use in unapproved indication [Unknown]
  - Asthenia [Unknown]
  - Vomiting [Unknown]
  - Addison^s disease [Unknown]
  - Somnolence [Unknown]
  - Back pain [Unknown]
  - Confusional state [Unknown]
  - Aphasia [Unknown]

NARRATIVE: CASE EVENT DATE: 20180307
